FAERS Safety Report 5191484-2 (Version None)
Quarter: 2006Q4

REPORT INFORMATION
  Report Type: 
  Country: None (occurrence: None)
  Receive Date: 20061226
  Receipt Date: 20060925
  Transmission Date: 20070319
  Serious: Yes (Other)
  Sender: FDA-Public Use
  Company Number: 2006SE05641

PATIENT
  Sex: Male
  Weight: 76 kg

DRUGS (4)
  1. PULMICORT [Suspect]
     Indication: ASTHMA
     Route: 055
     Dates: start: 20040518, end: 20061012
  2. BRICANYL [Concomitant]
     Indication: ASTHMA
     Dosage: 0-1 PO
     Route: 048
     Dates: start: 20040518
  3. LIVOSTIN EYEDROPS [Concomitant]
     Indication: RHINITIS
     Dates: start: 20040518
  4. RHINOCORT AQUA [Concomitant]
     Indication: RHINITIS
     Dates: start: 20040518

REACTIONS (3)
  - AGGRESSION [None]
  - MOOD SWINGS [None]
  - RESTLESSNESS [None]
